FAERS Safety Report 24227861 (Version 1)
Quarter: 2024Q3

REPORT INFORMATION
  Report Type: Spontaneous
  Country: PK (occurrence: PK)
  Receive Date: 20240820
  Receipt Date: 20240820
  Transmission Date: 20241017
  Serious: Yes (Death, Other)
  Sender: PFIZER
  Company Number: PK-PFIZER INC-PV202200010332

PATIENT
  Age: 63 Year
  Sex: Male

DRUGS (3)
  1. SUTENT [Suspect]
     Active Substance: SUNITINIB MALATE
     Indication: Metastatic renal cell carcinoma
     Dosage: CONTINUOUS
     Route: 048
     Dates: start: 201806
  2. SUTENT [Suspect]
     Active Substance: SUNITINIB MALATE
     Dosage: 1X/DAY, 4 WEEKS ON, 2 WEEKS OFF
     Route: 048
  3. SUTENT [Suspect]
     Active Substance: SUNITINIB MALATE
     Dosage: 4 WEEKS ON, 2 WEEKS OFF
     Route: 048
     Dates: start: 202206, end: 20240815

REACTIONS (4)
  - Death [Fatal]
  - Anal fistula [Unknown]
  - Off label use [Unknown]
  - Product use issue [Unknown]
